FAERS Safety Report 18428506 (Version 1)
Quarter: 2020Q4

REPORT INFORMATION
  Report Type: Spontaneous
  Country: US (occurrence: US)
  Receive Date: 20201026
  Receipt Date: 20201026
  Transmission Date: 20210114
  Serious: Yes (Hospitalization, Other)
  Sender: FDA-Public Use
  Company Number: US-SYNTHON BV-IN51PV20_55884

PATIENT
  Age: 24 Year
  Sex: Male

DRUGS (3)
  1. PROPOFOL. [Concomitant]
     Active Substance: PROPOFOL
     Indication: ANAESTHESIA
     Dosage: UNK
     Route: 042
  2. TAMSULOSIN [Suspect]
     Active Substance: TAMSULOSIN
     Indication: LOWER URINARY TRACT SYMPTOMS
  3. TAMSULOSIN [Suspect]
     Active Substance: TAMSULOSIN
     Indication: URETEROLITHIASIS
     Dosage: TAKEN THREE PILLS AFTER DISCHARGE, 8 HOURS

REACTIONS (2)
  - Priapism [Recovered/Resolved]
  - Erectile dysfunction [Unknown]
